FAERS Safety Report 16354725 (Version 1)
Quarter: 2019Q2

REPORT INFORMATION
  Report Type: Spontaneous
  Country: US (occurrence: US)
  Receive Date: 20190524
  Receipt Date: 20190524
  Transmission Date: 20190711
  Serious: Yes (Hospitalization)
  Sender: FDA-Public Use
  Company Number: US-VERTEX PHARMACEUTICALS-2019-004690

PATIENT
  Sex: Female

DRUGS (4)
  1. SODIUM CHLORIDE. [Concomitant]
     Active Substance: SODIUM CHLORIDE
     Route: 055
  2. ORKAMBI [Suspect]
     Active Substance: IVACAFTOR\LUMACAFTOR
     Indication: CYSTIC FIBROSIS
     Dosage: 2 DOSAGE FORM (200/125 MG), BID
     Route: 048
     Dates: start: 20181121
  3. GENTAMICIN. [Concomitant]
     Active Substance: GENTAMICIN
  4. CAYSTON [Concomitant]
     Active Substance: AZTREONAM
     Dosage: UNK

REACTIONS (1)
  - Hospitalisation [Not Recovered/Not Resolved]

NARRATIVE: CASE EVENT DATE: 2019
